FAERS Safety Report 17311846 (Version 1)
Quarter: 2020Q1

REPORT INFORMATION
  Report Type: Spontaneous
  Country: US (occurrence: US)
  Receive Date: 20200123
  Receipt Date: 20200123
  Transmission Date: 20200409
  Serious: No
  Sender: FDA-Public Use
  Company Number: US-NOVOPROD-695968

PATIENT
  Age: 63 Year
  Sex: Male

DRUGS (1)
  1. OZEMPIC [Suspect]
     Active Substance: SEMAGLUTIDE
     Indication: TYPE 2 DIABETES MELLITUS
     Dosage: 0.25 MG, QW
     Route: 058
     Dates: start: 20191104

REACTIONS (5)
  - Nausea [Recovered/Resolved]
  - Flatulence [Recovered/Resolved]
  - Hypersomnia [Recovered/Resolved]
  - Blood glucose decreased [Recovered/Resolved]
  - Diarrhoea [Recovered/Resolved]

NARRATIVE: CASE EVENT DATE: 20191104
